FAERS Safety Report 4279684-7 (Version None)
Quarter: 2004Q1

REPORT INFORMATION
  Report Type: 
  Country: None (occurrence: None)
  Receive Date: 20040122
  Receipt Date: 20040113
  Transmission Date: 20041129
  Serious: Yes (Disabling)
  Sender: FDA-Public Use
  Company Number: 200419438DE

PATIENT
  Sex: Male

DRUGS (1)
  1. ZYVOXID 600MG (LINEZOLID)TABLET [Suspect]
     Indication: TUBERCULOSIS

REACTIONS (1)
  - PARALYSIS [None]
